FAERS Safety Report 10927110 (Version 1)
Quarter: 2015Q1

REPORT INFORMATION
  Report Type: Spontaneous
  Country: US (occurrence: US)
  Receive Date: 20150318
  Receipt Date: 20150318
  Transmission Date: 20150721
  Serious: No
  Sender: FDA-Public Use
  Company Number: US-GILEAD-2015-0141487

PATIENT
  Sex: Female

DRUGS (2)
  1. HARVONI [Suspect]
     Active Substance: LEDIPASVIR\SOFOSBUVIR
     Indication: PRODUCT USED FOR UNKNOWN INDICATION
     Route: 065
  2. TEA, GREEN [Concomitant]
     Active Substance: GREEN TEA LEAF

REACTIONS (5)
  - Fatigue [Unknown]
  - Pain [Unknown]
  - Insomnia [Unknown]
  - Nausea [Unknown]
  - Discomfort [Unknown]
